FAERS Safety Report 6636675-6 (Version None)
Quarter: 2010Q1

REPORT INFORMATION
  Report Type: 
  Country: None (occurrence: None)
  Receive Date: 20100316
  Receipt Date: 20100304
  Transmission Date: 20100710
  Serious: Yes (Hospitalization)
  Sender: FDA-Public Use
  Company Number: A0850055A

PATIENT
  Age: 36 Year
  Sex: Female

DRUGS (2)
  1. BUPROPION HCL [Suspect]
     Indication: DRUG USE FOR UNKNOWN INDICATION
     Route: 065
  2. CLOZAPINE [Suspect]
     Indication: SCHIZOAFFECTIVE DISORDER
     Route: 048

REACTIONS (2)
  - BLOOD SODIUM DECREASED [None]
  - CONVULSION [None]
